FAERS Safety Report 6753058-9 (Version None)
Quarter: 2010Q2

REPORT INFORMATION
  Report Type: 
  Country: None (occurrence: None)
  Receive Date: 20100602
  Receipt Date: 20100602
  Transmission Date: 20101027
  Serious: Yes (Other)
  Sender: FDA-Public Use
  Company Number: None

PATIENT
  Age: 48 Year
  Sex: Female
  Weight: 72.1219 kg

DRUGS (5)
  1. FACTIVE [Suspect]
     Indication: BRONCHITIS
     Dosage: 320 MG ONE A DAY BY MOUTH
     Route: 048
     Dates: start: 20100212, end: 20100218
  2. FACTIVE [Suspect]
     Indication: PYREXIA
     Dosage: 320 MG ONE A DAY BY MOUTH
     Route: 048
     Dates: start: 20100212, end: 20100218
  3. FACTIVE [Suspect]
     Indication: SINUSITIS
     Dosage: 320 MG ONE A DAY BY MOUTH
     Route: 048
     Dates: start: 20100212, end: 20100218
  4. LIPITOR [Concomitant]
  5. DIAZIDE [Concomitant]

REACTIONS (6)
  - FACIAL PAIN [None]
  - FEELING ABNORMAL [None]
  - PAIN IN EXTREMITY [None]
  - RASH ERYTHEMATOUS [None]
  - SUNBURN [None]
  - SWELLING FACE [None]
